FAERS Safety Report 9741827 (Version 2)
Quarter: 2014Q1

REPORT INFORMATION
  Report Type: Report from Study
  Country: BR (occurrence: BR)
  Receive Date: 20131210
  Receipt Date: 20140228
  Transmission Date: 20141002
  Serious: Yes (Other)
  Sender: FDA-Public Use
  Company Number: PHHY2013BR142011

PATIENT
  Sex: Female
  Weight: 67 kg

DRUGS (7)
  1. SANDOSTATIN [Suspect]
     Indication: BLOOD GROWTH HORMONE INCREASED
     Dosage: 1 DF, A MONTH
  2. GLUCOFORMIN [Concomitant]
     Indication: DIABETES MELLITUS
     Dosage: 1 DF, IN THE MORNING AND AT NIGHT
     Route: 048
  3. DAONIL [Concomitant]
     Indication: DIABETES MELLITUS
     Dosage: 1 DF, IN THE MORNING AND AT NIGHT
     Route: 048
  4. ENALAPRIL [Concomitant]
     Indication: CARDIAC DISORDER
     Dosage: 1 DF, IN THE MORNING AND AT NIGHT
     Route: 048
  5. SELOZOK [Concomitant]
     Indication: CARDIAC DISORDER
     Dosage: 25 MG, DAILY
     Route: 048
  6. AAS [Concomitant]
     Indication: BLOOD DISORDER
     Dosage: 1 DF, DAILY
     Route: 048
  7. OMEGA 3 6 9 [Concomitant]
     Indication: EYE DISORDER
     Dosage: 1 DF, AT NIGHT
     Route: 048

REACTIONS (5)
  - Neoplasm [Unknown]
  - Libido decreased [Not Recovered/Not Resolved]
  - Visual impairment [Not Recovered/Not Resolved]
  - Feeling abnormal [Not Recovered/Not Resolved]
  - Malaise [Not Recovered/Not Resolved]
